FAERS Safety Report 6245634-7 (Version None)
Quarter: 2009Q2

REPORT INFORMATION
  Report Type: 
  Country: None (occurrence: None)
  Receive Date: 20090625
  Receipt Date: 20081024
  Transmission Date: 20091009
  Serious: No
  Sender: FDA-Public Use
  Company Number: US-ASTRAZENECA-2008UW23869

PATIENT
  Sex: Female

DRUGS (1)
  1. ZOLADEX [Suspect]
     Dosage: 3.6 MG
     Route: 058
     Dates: start: 20081016

REACTIONS (1)
  - MEDICAL DEVICE COMPLICATION [None]
